FAERS Safety Report 6233555-5 (Version None)
Quarter: 2009Q2

REPORT INFORMATION
  Report Type: 
  Country: None (occurrence: None)
  Receive Date: 20090617
  Receipt Date: 20090602
  Transmission Date: 20091009
  Serious: Yes (Disabling)
  Sender: FDA-Public Use
  Company Number: CN-GENENTECH-284912

PATIENT
  Sex: Female

DRUGS (2)
  1. BEVACIZUMAB [Suspect]
     Indication: BREAST CANCER METASTATIC
     Dosage: 118 MG, Q3W
     Route: 042
     Dates: start: 20080826
  2. DOCETAXEL [Suspect]
     Indication: BREAST CANCER METASTATIC
     Dosage: 800 MG, Q3W
     Route: 042
     Dates: start: 20080826

REACTIONS (2)
  - KERATITIS [None]
  - NEURITIS [None]
